FAERS Safety Report 17416501 (Version 1)
Quarter: 2020Q1

REPORT INFORMATION
  Report Type: Spontaneous
  Country: NL (occurrence: NL)
  Receive Date: 20200213
  Receipt Date: 20200213
  Transmission Date: 20200409
  Serious: Yes (Other)
  Sender: FDA-Public Use
  Company Number: NL-PFIZER INC-2020059977

PATIENT
  Age: 54 Year
  Sex: Female
  Weight: 51 kg

DRUGS (2)
  1. PACLITAXEL. [Suspect]
     Active Substance: PACLITAXEL
     Indication: BREAST CANCER
     Dosage: SOLUTION FOR INFUSION, 6 MG/ML, 120 MG ONCE A WEEK
     Dates: start: 20191004, end: 20191220
  2. DEXAMETHASONE. [Concomitant]
     Active Substance: DEXAMETHASONE

REACTIONS (4)
  - Pseudomonas infection [Recovering/Resolving]
  - Dysgeusia [Unknown]
  - Streptococcal infection [Recovering/Resolving]
  - Nail infection [Recovering/Resolving]

NARRATIVE: CASE EVENT DATE: 20191023
